FAERS Safety Report 23410996 (Version 2)
Quarter: 2025Q2

REPORT INFORMATION
  Report Type: Spontaneous
  Country: PT (occurrence: PT)
  Receive Date: 20240117
  Receipt Date: 20250610
  Transmission Date: 20250716
  Serious: Yes (Hospitalization, Other)
  Sender: TEVA
  Company Number: PT-TEVA-VS-3144239

PATIENT
  Age: 61 Year
  Sex: Male

DRUGS (2)
  1. FLUOROURACIL [Interacting]
     Active Substance: FLUOROURACIL
     Indication: Adenocarcinoma gastric
     Route: 065
  2. BRIVUDINE [Interacting]
     Active Substance: BRIVUDINE
     Indication: Adenocarcinoma gastric
     Route: 065

REACTIONS (5)
  - Drug interaction [Unknown]
  - Thrombocytopenia [Unknown]
  - Neutropenia [Unknown]
  - Alopecia [Unknown]
  - Mucosal inflammation [Unknown]
